FAERS Safety Report 6897614-6 (Version None)
Quarter: 2010Q3

REPORT INFORMATION
  Report Type: 
  Country: None (occurrence: None)
  Receive Date: 20100802
  Receipt Date: 20070703
  Transmission Date: 20110219
  Serious: No
  Sender: FDA-Public Use
  Company Number: US-PFIZER INC-2007055407

PATIENT
  Sex: Female

DRUGS (9)
  1. LYRICA [Suspect]
  2. PLAVIX [Concomitant]
  3. ACIPHEX [Concomitant]
  4. HYDROCHLOROTHIAZIDE [Concomitant]
  5. TOPROL-XL [Concomitant]
  6. FLEXERIL [Concomitant]
  7. OSTEO BI-FLEX [Concomitant]
  8. CALAN [Concomitant]
  9. POTASSIUM [Concomitant]

REACTIONS (1)
  - SOMNOLENCE [None]
